FAERS Safety Report 9244780 (Version 1)
Quarter: 2013Q2

REPORT INFORMATION
  Report Type: Report from Study
  Country: CA (occurrence: CA)
  Receive Date: 20130422
  Receipt Date: 20130422
  Transmission Date: 20140414
  Serious: Yes (Other)
  Sender: FDA-Public Use
  Company Number: CA-JNJFOC-20130408814

PATIENT
  Age: 16 Year
  Sex: Female
  Weight: 55 kg

DRUGS (2)
  1. REMICADE [Suspect]
     Indication: CROHN^S DISEASE
     Dosage: 300 (UNITS UNSPECIFIED)
     Route: 042
     Dates: start: 20130412
  2. REMICADE [Suspect]
     Indication: CROHN^S DISEASE
     Dosage: DOSE: 300 (UNITS UNSPECIFIED)
     Route: 042

REACTIONS (4)
  - Dyspnoea [Not Recovered/Not Resolved]
  - Chest discomfort [Not Recovered/Not Resolved]
  - Infusion related reaction [Not Recovered/Not Resolved]
  - Flushing [Not Recovered/Not Resolved]
